FAERS Safety Report 16180875 (Version 1)
Quarter: 2019Q2

REPORT INFORMATION
  Report Type: Spontaneous
  Country: PL (occurrence: PL)
  Receive Date: 20190410
  Receipt Date: 20190410
  Transmission Date: 20190711
  Serious: Yes (Hospitalization, Other)
  Sender: FDA-Public Use
  Company Number: PL-SEATTLE GENETICS-2019SGN00596

PATIENT
  Sex: Male

DRUGS (5)
  1. GEMCITABINE [Suspect]
     Active Substance: GEMCITABINE\GEMCITABINE HYDROCHLORIDE
     Indication: HODGKIN^S DISEASE
     Dosage: 800 MILLIGRAM/SQ. METER
     Route: 065
     Dates: start: 201603
  2. GRANULOCYTE COLONY STIMULATING FACTOR [Suspect]
     Active Substance: GRANULOCYTE COLONY-STIMULATING FACTOR NOS
     Indication: PROPHYLAXIS
     Dosage: UNK
     Route: 065
  3. IFOSFAMIDE. [Suspect]
     Active Substance: IFOSFAMIDE
     Indication: HODGKIN^S DISEASE
     Dosage: 2000 MG/M2, UNK
     Route: 065
     Dates: start: 201603
  4. VINORELBINE [Suspect]
     Active Substance: VINORELBINE\VINORELBINE TARTRATE
     Indication: HODGKIN^S DISEASE
     Dosage: 20 MILLIGRAM/SQ. METER
     Route: 065
     Dates: start: 201603
  5. ADCETRIS [Suspect]
     Active Substance: BRENTUXIMAB VEDOTIN
     Indication: HODGKIN^S DISEASE
     Dosage: 1.8 MILLIGRAM/SQ. METER
     Route: 042
     Dates: start: 201608, end: 201701

REACTIONS (6)
  - Renal impairment [Unknown]
  - Product use in unapproved indication [Unknown]
  - Ejection fraction decreased [Unknown]
  - Anaemia [Unknown]
  - Febrile neutropenia [Unknown]
  - Polyneuropathy [Unknown]
